FAERS Safety Report 9803520 (Version 1)
Quarter: 2014Q1

REPORT INFORMATION
  Report Type: Spontaneous
  Country: US (occurrence: US)
  Receive Date: 20140108
  Receipt Date: 20140108
  Transmission Date: 20141002
  Serious: No
  Sender: FDA-Public Use
  Company Number: US-GLAXOSMITHKLINE-A1003405A

PATIENT
  Age: 57 Year
  Sex: Female

DRUGS (1)
  1. LOVAZA [Suspect]
     Indication: BLOOD CHOLESTEROL INCREASED
     Dosage: 1G UNKNOWN
     Route: 048
     Dates: start: 20120215, end: 20121126

REACTIONS (2)
  - Blood cholesterol increased [Unknown]
  - Drug ineffective for unapproved indication [Unknown]
